FAERS Safety Report 7984572-6 (Version None)
Quarter: 2011Q4

REPORT INFORMATION
  Report Type: 
  Country: None (occurrence: None)
  Receive Date: 20111216
  Receipt Date: 20111212
  Transmission Date: 20120403
  Serious: Yes (Other)
  Sender: FDA-Public Use
  Company Number: AU-JNJFOC-20110909142

PATIENT
  Sex: Male

DRUGS (5)
  1. STELARA [Suspect]
     Indication: PSORIASIS
     Route: 058
     Dates: start: 20100329
  2. STELARA [Suspect]
     Route: 058
     Dates: start: 20111122
  3. COVERSYL PLUS [Concomitant]
  4. STELARA [Suspect]
     Route: 058
     Dates: start: 20110801
  5. NORVASC [Concomitant]

REACTIONS (3)
  - PSORIASIS [None]
  - CARDIAC DISORDER [None]
  - CORONARY ARTERY BYPASS [None]
